FAERS Safety Report 8618674 (Version 2)
Quarter: 2013Q3

REPORT INFORMATION
  Report Type: Spontaneous
  Country: US (occurrence: US)
  Receive Date: 20120618
  Receipt Date: 20130903
  Transmission Date: 20140515
  Serious: No
  Sender: FDA-Public Use
  Company Number: US-PFIZER INC-2012141269

PATIENT
  Age: 50 Year
  Sex: Male

DRUGS (7)
  1. BENZYLPENICILLIN POTASSIUM [Suspect]
     Dosage: UNK
  2. FELDENE [Suspect]
     Dosage: UNK
  3. CODEINE [Suspect]
     Dosage: UNK
  4. ASA [Suspect]
     Dosage: 325 MG, UNK
  5. TERAZOSIN [Suspect]
     Dosage: UNK
  6. MUCINEX D [Suspect]
     Dosage: UNK
  7. MUCINEX [Suspect]
     Dosage: UNK

REACTIONS (1)
  - Drug hypersensitivity [Unknown]
